FAERS Safety Report 7937942-6 (Version None)
Quarter: 2011Q4

REPORT INFORMATION
  Report Type: 
  Country: None (occurrence: None)
  Receive Date: 20111123
  Receipt Date: 20111117
  Transmission Date: 20120403
  Serious: Yes (Other)
  Sender: FDA-Public Use
  Company Number: DE-ROCHE-800035

PATIENT
  Sex: Female
  Weight: 52 kg

DRUGS (4)
  1. PREDNISOLONE [Concomitant]
     Dosage: 100MG PER MABTHERA INFUSION AND RARELY 5MG
     Route: 042
     Dates: start: 20110328
  2. MABTHERA [Suspect]
     Indication: RHEUMATOID ARTHRITIS
     Dosage: LAST GIVEN DOSAGE PRIOR TO THE EVENT: MAY-2011
     Route: 042
  3. CELEBREX [Concomitant]
     Indication: PAIN
     Route: 048
  4. MABTHERA [Suspect]
     Route: 042

REACTIONS (2)
  - HYPERTENSION [None]
  - BUNDLE BRANCH BLOCK LEFT [None]
